FAERS Safety Report 7969831-5 (Version None)
Quarter: 2011Q4

REPORT INFORMATION
  Report Type: 
  Country: None (occurrence: None)
  Receive Date: 20111212
  Receipt Date: 20111206
  Transmission Date: 20120403
  Serious: Yes (Other)
  Sender: FDA-Public Use
  Company Number: SE-PFIZER INC-2011297402

PATIENT
  Sex: Female

DRUGS (3)
  1. PREDNISOLONE [Suspect]
     Indication: PROCTITIS ULCERATIVE
     Dosage: 10 MG, UNK
  2. SULFASALAZINE [Suspect]
     Indication: PROCTITIS ULCERATIVE
     Dosage: UNK
     Route: 048
  3. ASACOL [Suspect]
     Indication: PROCTITIS ULCERATIVE
     Dosage: 500 MG, UNK

REACTIONS (3)
  - ANAL HAEMORRHAGE [None]
  - ABDOMINAL PAIN UPPER [None]
  - GASTROINTESTINAL DISORDER [None]
